FAERS Safety Report 5592366-4 (Version None)
Quarter: 2008Q1

REPORT INFORMATION
  Report Type: 
  Country: None (occurrence: None)
  Receive Date: 20080111
  Receipt Date: 20080102
  Transmission Date: 20080703
  Serious: Yes (Hospitalization)
  Sender: FDA-Public Use
  Company Number: 2008-00017

PATIENT
  Age: 57 Year
  Sex: Female

DRUGS (1)
  1. NAPROXEN [Suspect]
     Indication: PAIN
     Dosage: 1 TABLET, SINGLE, ORAL
     Route: 048
     Dates: start: 20070101, end: 20070101

REACTIONS (1)
  - HEPATITIS TOXIC [None]
